FAERS Safety Report 14079707 (Version 5)
Quarter: 2019Q1

REPORT INFORMATION
  Report Type: Spontaneous
  Country: CA (occurrence: CA)
  Receive Date: 20171012
  Receipt Date: 20190328
  Transmission Date: 20190417
  Serious: Yes (Other)
  Sender: FDA-Public Use
  Company Number: CA-PFIZER INC-2017362405

PATIENT
  Age: 10 Year
  Sex: Male

DRUGS (2)
  1. TRYPTOPHAN [Concomitant]
     Active Substance: TRYPTOPHAN
     Dosage: UNK, AT BEDTIME
     Route: 048
     Dates: start: 201705
  2. GENOTROPIN GOQUICK [Suspect]
     Active Substance: SOMATROPIN
     Indication: GROWTH RETARDATION
     Dosage: 2 MG, 1X/DAY (6 DAYS A WEEK, NO INJECTIONS ON SATURDAYS)
     Route: 058
     Dates: start: 20170906, end: 20171001

REACTIONS (9)
  - Neck pain [Recovered/Resolved]
  - Ocular discomfort [Recovered/Resolved]
  - Hypertension [Recovered/Resolved]
  - Product prescribing error [Unknown]
  - Eye haemorrhage [Recovered/Resolved]
  - Headache [Recovered/Resolved]
  - Musculoskeletal pain [Recovered/Resolved]
  - Hydrocephalus [Not Recovered/Not Resolved]
  - Injection site pain [Recovered/Resolved]

NARRATIVE: CASE EVENT DATE: 20170908
